FAERS Safety Report 11644216 (Version 1)
Quarter: 2015Q4

REPORT INFORMATION
  Report Type: Spontaneous
  Country: TT (occurrence: TT)
  Receive Date: 20151020
  Receipt Date: 20151020
  Transmission Date: 20160304
  Serious: Yes (Disabling, Other)
  Sender: FDA-Public Use
  Company Number: TT-GLAXOSMITHKLINE-TT2015GSK146670

PATIENT
  Age: 81 Year
  Sex: Male

DRUGS (1)
  1. AVODART [Suspect]
     Active Substance: DUTASTERIDE
     Indication: BENIGN PROSTATIC HYPERPLASIA
     Dosage: 1 CAPSULE, QD
     Dates: start: 20150801, end: 20150917

REACTIONS (5)
  - Product counterfeit [Unknown]
  - Pelvic discomfort [Recovered/Resolved]
  - Dysuria [Recovered/Resolved]
  - Urine flow decreased [Not Recovered/Not Resolved]
  - Pollakiuria [Not Recovered/Not Resolved]

NARRATIVE: CASE EVENT DATE: 20150820
